FAERS Safety Report 8670964 (Version 2)
Quarter: 2012Q4

REPORT INFORMATION
  Report Type: Report from Study
  Country: US (occurrence: US)
  Receive Date: 20120718
  Receipt Date: 20121120
  Transmission Date: 20130627
  Serious: Yes (Hospitalization)
  Sender: FDA-Public Use
  Company Number: US-JNJFOC-20120707962

PATIENT
  Age: 62 Year
  Sex: Female
  Weight: 90.7 kg

DRUGS (17)
  1. IBUPROFEN [Suspect]
     Indication: RHEUMATOID ARTHRITIS
     Route: 048
     Dates: start: 20111108, end: 20120626
  2. IBUPROFEN [Suspect]
     Indication: OSTEOARTHRITIS
     Route: 048
     Dates: start: 20111108, end: 20120626
  3. ACETYLSALICYLIC ACID [Concomitant]
     Indication: PROPHYLAXIS
     Route: 048
     Dates: start: 20120109
  4. CLOPIDOGREL BISULFATE [Concomitant]
     Indication: CORONARY ARTERY DISEASE
     Route: 048
     Dates: start: 20101012
  5. FUROSEMIDE [Concomitant]
     Indication: OEDEMA
     Dosage: 2 tablets once in morning
     Route: 048
     Dates: start: 20111129
  6. KLOR-CON [Concomitant]
     Indication: SUPPLEMENTATION THERAPY
     Route: 048
     Dates: start: 20111130
  7. RANOLAZINE [Concomitant]
     Indication: CHEST DISCOMFORT
     Route: 048
     Dates: start: 20110408
  8. NITRO-DUR [Concomitant]
     Indication: CHEST PAIN
     Route: 060
     Dates: start: 20110318
  9. ROSUVASTATIN [Concomitant]
     Indication: HYPERCHOLESTEROLAEMIA
     Route: 048
     Dates: start: 20100810
  10. MIRAPEX [Concomitant]
     Indication: RESTLESS LEGS SYNDROME
     Route: 048
     Dates: start: 20110912
  11. BUSPIRONE HYDROCHLORIDE [Concomitant]
     Indication: STRESS
     Route: 048
     Dates: start: 20111129
  12. CITALOPRAM [Concomitant]
     Indication: ANXIETY
     Route: 048
     Dates: start: 20100525
  13. LEVOCETIRIZINE DIHYDROCHLORIDE [Concomitant]
     Indication: SEASONAL ALLERGY
     Route: 048
     Dates: start: 20110323
  14. PHENTERMINE HYDROCHLORIDE [Concomitant]
     Indication: WEIGHT DECREASED
     Route: 048
     Dates: start: 20110811
  15. METOPROLOL SUCCINATE [Concomitant]
     Indication: HYPERTENSION
     Route: 048
     Dates: start: 20100820
  16. FENOFIBRATE [Concomitant]
     Indication: HYPERCHOLESTEROLAEMIA
     Route: 048
     Dates: start: 20111216
  17. NEXIUM [Concomitant]
     Indication: PROPHYLAXIS
     Route: 048
     Dates: end: 20120626

REACTIONS (7)
  - Syncope [Recovered/Resolved]
  - Head injury [None]
  - Cerebral atrophy [None]
  - Carotid artery stenosis [None]
  - Carotid artery occlusion [None]
  - Electrocardiogram T wave abnormal [None]
  - Carotid artery disease [None]
